FAERS Safety Report 7474574-0 (Version None)
Quarter: 2011Q1

REPORT INFORMATION
  Report Type: 
  Country: None (occurrence: None)
  Receive Date: 20110302
  Receipt Date: 20100907
  Transmission Date: 20110831
  Serious: Yes (Death)
  Sender: FDA-Public Use
  Company Number: 163-21880-10071164

PATIENT
  Age: 84 Year
  Sex: Male

DRUGS (5)
  1. METOPROLOL TARTRATE [Concomitant]
  2. REVLIMID [Suspect]
     Indication: MULTIPLE MYELOMA
     Dosage: 10 MG, DAILY X 2 WEEKS ON, 2 WEEKS OFF, PO
     Route: 048
     Dates: start: 20071001, end: 20100701
  3. HYDRALAZINE HCL [Concomitant]
  4. NIFEDIPINE [Concomitant]
  5. COUMADIN [Concomitant]

REACTIONS (1)
  - ATRIAL FLUTTER [None]
